FAERS Safety Report 21729191 (Version 1)
Quarter: 2022Q4

REPORT INFORMATION
  Report Type: Spontaneous
  Country: US (occurrence: US)
  Receive Date: 20221214
  Receipt Date: 20221214
  Transmission Date: 20230113
  Serious: No
  Sender: FDA-Public Use
  Company Number: US-MYLANLABS-2022M1136698

PATIENT
  Age: 78 Year
  Sex: Male

DRUGS (2)
  1. ALPRAZOLAM [Suspect]
     Active Substance: ALPRAZOLAM
     Indication: Product used for unknown indication
     Dosage: 0.75 MILLIGRAM, HS
     Route: 065
  2. ALPRAZOLAM [Suspect]
     Active Substance: ALPRAZOLAM
     Dosage: 0.40 MILLIGRAM
     Route: 065

REACTIONS (3)
  - Poor quality sleep [Unknown]
  - Vasoconstriction [Unknown]
  - Blood pressure increased [Unknown]
